FAERS Safety Report 14196454 (Version 1)
Quarter: 2017Q4

REPORT INFORMATION
  Report Type: Spontaneous
  Country: US (occurrence: US)
  Receive Date: 20171116
  Receipt Date: 20171116
  Transmission Date: 20180321
  Serious: Yes (Other)
  Sender: FDA-Public Use
  Company Number: US-PFIZER INC-2017490048

PATIENT
  Age: 63 Year
  Sex: Male
  Weight: 75 kg

DRUGS (1)
  1. VIAGRA [Suspect]
     Active Substance: SILDENAFIL CITRATE
     Dosage: UNK
     Dates: end: 201709

REACTIONS (4)
  - Pupillary disorder [Unknown]
  - Visual impairment [Recovered/Resolved with Sequelae]
  - Retinal artery thrombosis [Unknown]
  - Hypoacusis [Recovering/Resolving]

NARRATIVE: CASE EVENT DATE: 20170815
